FAERS Safety Report 6473309-8 (Version None)
Quarter: 2009Q4

REPORT INFORMATION
  Report Type: 
  Country: None (occurrence: None)
  Receive Date: 20091204
  Receipt Date: 20090416
  Transmission Date: 20100525
  Serious: Yes (Death, Hospitalization, Other)
  Sender: FDA-Public Use
  Company Number: ES-ELI_LILLY_AND_COMPANY-ES200806004555

PATIENT
  Age: 60 Year
  Sex: Male

DRUGS (13)
  1. XIGRIS [Suspect]
     Indication: MULTI-ORGAN FAILURE
     Dosage: 24 MCG/KG/HR, DURING 96 HOURS
     Route: 065
     Dates: start: 20080605, end: 20080609
  2. OMEPRAZOLE [Concomitant]
     Dosage: UNK, UNKNOWN
  3. ONDASETRON [Concomitant]
     Dosage: UNK, UNKNOWN
  4. FENTANYL [Concomitant]
     Dosage: UNK, UNKNOWN
     Route: 062
  5. NOLOTIL [Concomitant]
     Dosage: UNK, UNKNOWN
  6. ENANTYUM [Concomitant]
     Dosage: UNK, UNKNOWN
  7. LACTULOSE [Concomitant]
     Dosage: UNK, UNKNOWN
  8. TRADONAL [Concomitant]
     Dosage: UNK, UNKNOWN
  9. DACORTIN [Concomitant]
     Dosage: UNK, UNKNOWN
  10. AZATIOPRIN [Concomitant]
     Indication: AUTOIMMUNE HEPATITIS
     Dosage: UNK, UNKNOWN
  11. CORTICOSTEROIDS [Concomitant]
     Indication: AUTOIMMUNE HEPATITIS
     Dosage: UNK, UNKNOWN
  12. TAXOL W/CARBOPLATIN [Concomitant]
     Dosage: UNK, UNKNOWN
  13. HEPARIN [Concomitant]
     Dosage: UNK, UNKNOWN

REACTIONS (5)
  - CEREBRAL HAEMORRHAGE [None]
  - HAEMORRHAGIC CEREBRAL INFARCTION [None]
  - PERITONITIS [None]
  - RESPIRATORY DISORDER [None]
  - THROMBOCYTOPENIA [None]
